FAERS Safety Report 5418680-0 (Version None)
Quarter: 2007Q3

REPORT INFORMATION
  Report Type: 
  Country: None (occurrence: None)
  Receive Date: 20070817
  Receipt Date: 20070807
  Transmission Date: 20080115
  Serious: Yes (Other)
  Sender: FDA-Public Use
  Company Number: BR-PFIZER INC-2007065918

PATIENT
  Sex: Female

DRUGS (2)
  1. ALDACTONE [Suspect]
     Route: 048
  2. LOSARTAN POTASSIUM [Suspect]
     Route: 048

REACTIONS (3)
  - BLOOD PRESSURE INCREASED [None]
  - DYSPNOEA [None]
  - HEADACHE [None]
